FAERS Safety Report 5966196-5 (Version None)
Quarter: 2008Q4

REPORT INFORMATION
  Report Type: 
  Country: None (occurrence: None)
  Receive Date: 20081125
  Receipt Date: 20081118
  Transmission Date: 20090506
  Serious: Yes (Other)
  Sender: FDA-Public Use
  Company Number: US-BAYER-200831990NA

PATIENT
  Age: 84 Year
  Sex: Male

DRUGS (14)
  1. LEUKINE [Suspect]
     Indication: PROSTATE CANCER
     Dosage: AS USED: 0.125 MG
     Dates: start: 20051201, end: 20071001
  2. LEUKINE [Suspect]
     Dosage: AS USED: 0.125 MG
     Dates: start: 20070101, end: 20071201
  3. LEUKINE [Suspect]
     Dosage: AS USED: 0.125 MG
     Dates: start: 20080515
  4. INTERFERON A [Concomitant]
  5. REVLIMID [Concomitant]
  6. THALIDOMIDE [Concomitant]
  7. CELEBREX [Concomitant]
  8. LIPITOR [Concomitant]
  9. AVODART [Concomitant]
  10. VITAMIN D [Concomitant]
  11. ASPIRIN [Concomitant]
  12. PROSCAR [Concomitant]
  13. HORMONE BLOCKADE [Concomitant]
  14. ANTI-GENETICS [Concomitant]

REACTIONS (2)
  - LEUKOCYTOCLASTIC VASCULITIS [None]
  - RASH [None]
